FAERS Safety Report 16804243 (Version 1)
Quarter: 2019Q3

REPORT INFORMATION
  Report Type: Spontaneous
  Country: DE (occurrence: DE)
  Receive Date: 20190913
  Receipt Date: 20190913
  Transmission Date: 20191005
  Serious: Yes (Other)
  Sender: FDA-Public Use
  Company Number: DE-ACCORD-154515

PATIENT
  Age: 28 Year
  Sex: Male
  Weight: 76 kg

DRUGS (1)
  1. FINASTERIDE. [Suspect]
     Active Substance: FINASTERIDE
     Indication: ALOPECIA
     Dosage: APPLICATION FROM THE AGE OF 19
     Dates: end: 201811

REACTIONS (5)
  - Altered state of consciousness [Not Recovered/Not Resolved]
  - Apathy [Not Recovered/Not Resolved]
  - Feeling abnormal [Not Recovered/Not Resolved]
  - Emotional poverty [Not Recovered/Not Resolved]
  - Loss of libido [Not Recovered/Not Resolved]

NARRATIVE: CASE EVENT DATE: 201810
